FAERS Safety Report 7958756-7 (Version None)
Quarter: 2011Q4

REPORT INFORMATION
  Report Type: 
  Country: None (occurrence: None)
  Receive Date: 20111206
  Receipt Date: 20111128
  Transmission Date: 20120403
  Serious: Yes (Other)
  Sender: FDA-Public Use
  Company Number: AU-JNJFOC-20111111714

PATIENT
  Sex: Female

DRUGS (1)
  1. DURAGESIC-100 [Suspect]
     Indication: PRODUCT USED FOR UNKNOWN INDICATION
     Dosage: (12MCG/HOUR AND 100MCG/HOUR)
     Route: 062

REACTIONS (3)
  - DRUG DOSE OMISSION [None]
  - PRODUCT PACKAGING ISSUE [None]
  - CONFUSIONAL STATE [None]
